FAERS Safety Report 7781051-6 (Version None)
Quarter: 2011Q3

REPORT INFORMATION
  Report Type: 
  Country: None (occurrence: None)
  Receive Date: 20110927
  Receipt Date: 20110913
  Transmission Date: 20111222
  Serious: Yes (Other)
  Sender: FDA-Public Use
  Company Number: PHHY2011BR82055

PATIENT
  Age: 57 Year
  Sex: Male
  Weight: 93 kg

DRUGS (6)
  1. LOSARTAN POTASSIUM [Concomitant]
     Dosage: 100 MG/DAY
  2. CLONIDINE HYDROCHLORIDE [Concomitant]
     Dosage: 0.150 MG,/DAY
  3. RASILEZ [Suspect]
     Indication: PROTEINURIA
     Dosage: 300 MG/DAY
  4. ASPIRIN [Concomitant]
     Dosage: 100 MG/DAY
  5. FUROSEMIDE [Concomitant]
     Dosage: 40 MG/DAY
  6. RASILEZ [Suspect]
     Indication: BLOOD PRESSURE
     Dosage: 150 MG/DAY

REACTIONS (8)
  - PROTEINURIA [None]
  - SWELLING [None]
  - BLOOD UREA INCREASED [None]
  - GLYCOSYLATED HAEMOGLOBIN INCREASED [None]
  - BLOOD PRESSURE INCREASED [None]
  - OEDEMA [None]
  - GLOMERULAR FILTRATION RATE DECREASED [None]
  - BLOOD GLUCOSE INCREASED [None]
